FAERS Safety Report 7635662-9 (Version None)
Quarter: 2011Q3

REPORT INFORMATION
  Report Type: 
  Country: None (occurrence: None)
  Receive Date: 20110726
  Receipt Date: 20110721
  Transmission Date: 20111222
  Serious: Yes (Death, Hospitalization, Other)
  Sender: FDA-Public Use
  Company Number: PHEH2009US07564

PATIENT
  Sex: Male

DRUGS (6)
  1. FLUCONAZOLE [Concomitant]
  2. AREDIA [Suspect]
     Dosage: 90 MG, QMO
     Dates: start: 20000201, end: 20011106
  3. ZOFRAN [Concomitant]
  4. ZOMETA [Suspect]
     Indication: MULTIPLE MYELOMA
     Dosage: 4 MG, QMO
     Dates: start: 20011106, end: 20041013
  5. CORTICOSTEROIDS [Concomitant]
  6. THALIDOMIDE [Concomitant]

REACTIONS (37)
  - THROMBOCYTOPENIA [None]
  - POLLAKIURIA [None]
  - SPINAL COLUMN STENOSIS [None]
  - SPINAL OSTEOARTHRITIS [None]
  - EPISTAXIS [None]
  - ASTHENIA [None]
  - INJURY [None]
  - DYSPNOEA EXERTIONAL [None]
  - INTERVERTEBRAL DISC DEGENERATION [None]
  - EMPHYSEMA [None]
  - DEPRESSION [None]
  - DEATH [None]
  - GINGIVAL SWELLING [None]
  - DECREASED INTEREST [None]
  - AORTIC ANEURYSM [None]
  - MARROW HYPERPLASIA [None]
  - HYPERKERATOSIS [None]
  - CORNEAL ABRASION [None]
  - GASTRITIS [None]
  - MALAISE [None]
  - ORAL PAIN [None]
  - PAIN IN JAW [None]
  - PLASMACYTOSIS [None]
  - HYPOTENSION [None]
  - NEUROPATHY PERIPHERAL [None]
  - OSTEONECROSIS OF JAW [None]
  - PAIN [None]
  - ANXIETY [None]
  - AXILLARY MASS [None]
  - AORTIC CALCIFICATION [None]
  - INTERVERTEBRAL DISC SPACE NARROWING [None]
  - CHRONIC OBSTRUCTIVE PULMONARY DISEASE [None]
  - INFLAMMATION [None]
  - MUSCULOSKELETAL STIFFNESS [None]
  - LEUKOCYTOSIS [None]
  - EXPOSED BONE IN JAW [None]
  - BLADDER CANCER [None]
